FAERS Safety Report 19087229 (Version 2)
Quarter: 2021Q2

REPORT INFORMATION
  Report Type: Report from Study
  Country: US (occurrence: US)
  Receive Date: 20210402
  Receipt Date: 20210624
  Transmission Date: 20210717
  Serious: Yes (Hospitalization, Other)
  Sender: FDA-Public Use
  Company Number: US-CHIASMA-2021CHI00068

PATIENT
  Age: 40 Year
  Sex: Female
  Weight: 67.57 kg

DRUGS (7)
  1. EPIPEN / ADRENACLICK [Concomitant]
     Dosage: 0.3 MG, AS NEEDED
     Route: 030
  2. MYCAPSSA [Suspect]
     Active Substance: OCTREOTIDE
     Indication: ACROMEGALY
     Dosage: 40 MG PER DAY
     Route: 048
     Dates: start: 2020, end: 202011
  3. IMITREX [Concomitant]
     Active Substance: SUMATRIPTAN SUCCINATE
     Dosage: 50 MG, AS NEEDED FOR ONSET OF HEADACHE
     Route: 048
  4. PROBOTIOC [Concomitant]
     Dosage: 1 DOSAGE FORM, 1X/DAY AS NEEDED
     Route: 048
  5. MYCAPSSA [Suspect]
     Active Substance: OCTREOTIDE
     Dosage: 20 MG AM AND 40 MG PM
     Route: 048
     Dates: start: 202011
  6. MULTIVITAMIN [Concomitant]
     Active Substance: VITAMINS
     Dosage: 2 DOSAGE FORM, 1X/DAY AS NEEDED
     Route: 048
  7. BENADRYL [Concomitant]
     Active Substance: DIPHENHYDRAMINE HYDROCHLORIDE
     Dosage: 12.5 MG, 1X/DAY, NIGHTLY, AS NEEDED

REACTIONS (6)
  - Urosepsis [Recovered/Resolved]
  - Kidney infection [Recovered/Resolved]
  - Acute kidney injury [Recovered/Resolved]
  - Urinary tract infection [Recovered/Resolved]
  - Nephrolithiasis [Recovered/Resolved]
  - Migraine [Recovering/Resolving]

NARRATIVE: CASE EVENT DATE: 202102
